FAERS Safety Report 5622045-6 (Version None)
Quarter: 2008Q1

REPORT INFORMATION
  Report Type: 
  Country: None (occurrence: None)
  Receive Date: 20080211
  Receipt Date: 20080130
  Transmission Date: 20080703
  Serious: Yes (Other)
  Sender: FDA-Public Use
  Company Number: US-ROCHE-517215

PATIENT
  Sex: Male
  Weight: 53.3 kg

DRUGS (8)
  1. ACCUTANE [Suspect]
     Indication: DRUG USE FOR UNKNOWN INDICATION
     Route: 048
     Dates: start: 20030318
  2. ACCUTANE [Suspect]
     Route: 048
     Dates: start: 20030416
  3. ACCUTANE [Suspect]
     Route: 048
     Dates: start: 20030514
  4. ACCUTANE [Suspect]
     Route: 048
     Dates: start: 20030620
  5. ACCUTANE [Suspect]
     Route: 048
     Dates: start: 20030806, end: 20030918
  6. PEPCID [Concomitant]
  7. COLACE [Concomitant]
  8. MOTRIN [Concomitant]
     Dates: start: 20050201

REACTIONS (27)
  - ABDOMINAL PAIN [None]
  - ANXIETY [None]
  - APPENDICITIS PERFORATED [None]
  - CHAPPED LIPS [None]
  - COLITIS ULCERATIVE [None]
  - CONSTIPATION [None]
  - CROHN'S DISEASE [None]
  - DEPRESSION [None]
  - GASTRIC ULCER [None]
  - GASTROINTESTINAL DISORDER [None]
  - GASTROOESOPHAGEAL REFLUX DISEASE [None]
  - HAEMATOCHEZIA [None]
  - HAEMORRHOIDS [None]
  - HEPATIC ENZYME INCREASED [None]
  - INFLAMMATORY BOWEL DISEASE [None]
  - INTESTINAL FISTULA [None]
  - INTESTINAL HAEMORRHAGE [None]
  - IRRITABLE BOWEL SYNDROME [None]
  - MIGRAINE [None]
  - NAUSEA [None]
  - PANCREATITIS [None]
  - PEPTIC ULCER [None]
  - RECTAL HAEMORRHAGE [None]
  - RETROPERITONEAL ABSCESS [None]
  - SMALL INTESTINAL OBSTRUCTION [None]
  - SOMNOLENCE [None]
  - VOMITING [None]
